FAERS Safety Report 5044825-0 (Version None)
Quarter: 2006Q2

REPORT INFORMATION
  Report Type: 
  Country: None (occurrence: None)
  Receive Date: 20060601
  Receipt Date: 20060406
  Transmission Date: 20061013
  Serious: No
  Sender: FDA-Public Use
  Company Number: 2006-BP-02607BP

PATIENT
  Age: 74 Year
  Sex: Female
  Weight: 53.6 kg

DRUGS (9)
  1. SPIRIVA [Suspect]
     Indication: CHRONIC OBSTRUCTIVE PULMONARY DISEASE
     Dosage: 18 MCG (18 MCG, 1/D), IH
     Route: 055
     Dates: start: 20060117
  2. BONIVA (IBANDRONATE SODIUM) [Concomitant]
  3. ZOCOR [Concomitant]
  4. ZOLOFT [Concomitant]
  5. ACTONEL [Concomitant]
  6. ASPIRIN [Concomitant]
  7. TRAVATON (TRAVOPROST) [Concomitant]
  8. CALCIUM (CALCIUM) [Concomitant]
  9. VITAMINS (VITAMINS) [Concomitant]

REACTIONS (1)
  - AGEUSIA [None]
